FAERS Safety Report 10152801 (Version 3)
Quarter: 2014Q2

REPORT INFORMATION
  Report Type: Spontaneous
  Country: US (occurrence: US)
  Receive Date: 20140505
  Receipt Date: 20140519
  Transmission Date: 20141212
  Serious: No
  Sender: FDA-Public Use
  Company Number: US-GILEAD-2014-0101089

PATIENT
  Sex: Male

DRUGS (7)
  1. SOVALDI [Suspect]
     Indication: HEPATITIS C
     Dosage: UNK
     Route: 065
     Dates: start: 20140207
  2. RIBAVIRIN [Concomitant]
  3. ZOLOFT [Concomitant]
  4. ATIVAN [Concomitant]
  5. ABILIFY [Concomitant]
  6. ATRIPLA [Concomitant]
  7. PROZAC [Concomitant]

REACTIONS (8)
  - Anger [Unknown]
  - Emotional disorder [Unknown]
  - Abnormal behaviour [Unknown]
  - Aggression [Unknown]
  - Mental disorder [Unknown]
  - Agitation [Unknown]
  - Anxiety [Unknown]
  - Irritability [Unknown]
